FAERS Safety Report 4362239-3 (Version None)
Quarter: 2004Q2

REPORT INFORMATION
  Report Type: 
  Country: None (occurrence: None)
  Receive Date: 20040518
  Receipt Date: 20040507
  Transmission Date: 20050107
  Serious: Yes (Hospitalization)
  Sender: FDA-Public Use
  Company Number: 2004212559US

PATIENT
  Age: 74 Year
  Sex: Male

DRUGS (3)
  1. ESTRACYT (ESTRAMUSTINE PHOSPHATE) CAPSULE [Suspect]
     Indication: PROSTATE CANCER
     Dosage: 280 MG, TID, ORAL
     Route: 048
     Dates: start: 20040406, end: 20040419
  2. COMPARATOR-ETOPOSIDE (ETOPOSIDE, ETOPOSIDE) CAPSULE [Suspect]
     Indication: PROSTATE CANCER
     Dosage: 50 MG, BID, ORAL
     Route: 048
     Dates: start: 20040406, end: 20040419
  3. COMPARATOR-PACLITAXEL (PACLITAXEL, PACLITAXEL) INJECTION [Suspect]
     Indication: PROSTATE CANCER
     Dosage: 240 MG, IV
     Route: 042
     Dates: start: 20040407

REACTIONS (8)
  - ASTHENIA [None]
  - ELECTROLYTE IMBALANCE [None]
  - GENERAL PHYSICAL HEALTH DETERIORATION [None]
  - INTERNATIONAL NORMALISED RATIO INCREASED [None]
  - NEUTROPENIA [None]
  - RECTAL ABSCESS [None]
  - TREATMENT NONCOMPLIANCE [None]
  - WHITE BLOOD CELL COUNT INCREASED [None]
